FAERS Safety Report 24051718 (Version 2)
Quarter: 2024Q4

REPORT INFORMATION
  Report Type: Report from Study
  Country: DE (occurrence: DE)
  Receive Date: 20240704
  Receipt Date: 20241011
  Transmission Date: 20250114
  Serious: Yes (Death, Hospitalization, Other)
  Sender: SANDOZ
  Company Number: DE-NOVPHSZ-PHHY2019DE180109

PATIENT
  Sex: Female

DRUGS (1)
  1. ETANERCEPT [Suspect]
     Active Substance: ETANERCEPT
     Indication: Rheumatoid arthritis
     Dosage: 50 MG
     Route: 065
     Dates: start: 201810, end: 202401

REACTIONS (4)
  - Death [Fatal]
  - Femur fracture [Unknown]
  - Hallucination, visual [Not Recovered/Not Resolved]
  - Bronchitis [Recovered/Resolved]

NARRATIVE: CASE EVENT DATE: 20181003
